FAERS Safety Report 10692361 (Version 1)
Quarter: 2015Q1

REPORT INFORMATION
  Report Type: Spontaneous
  Country: US (occurrence: None)
  Receive Date: 20150105
  Receipt Date: 20150105
  Transmission Date: 20150720
  Serious: Yes (Hospitalization, Other)
  Sender: FDA-Public Use
  Company Number: None

PATIENT
  Age: 43 Year
  Sex: Male
  Weight: 81.65 kg

DRUGS (2)
  1. ERYTHROMYCIN. [Suspect]
     Active Substance: ERYTHROMYCIN
     Indication: PROSTATITIS
     Dates: start: 20131010, end: 20131016
  2. CIPRO [Suspect]
     Active Substance: CIPROFLOXACIN HYDROCHLORIDE
     Indication: PROSTATITIS
     Route: 048

REACTIONS (9)
  - Anxiety [None]
  - Hypoaesthesia [None]
  - Nasal dryness [None]
  - Urinary tract infection [None]
  - Musculoskeletal stiffness [None]
  - Gait disturbance [None]
  - Paraesthesia [None]
  - Aptyalism [None]
  - Nasal discomfort [None]

NARRATIVE: CASE EVENT DATE: 20131013
